FAERS Safety Report 11905879 (Version 1)
Quarter: 2016Q1

REPORT INFORMATION
  Report Type: Spontaneous
  Country: US (occurrence: None)
  Receive Date: 20160108
  Receipt Date: 20160108
  Transmission Date: 20160526
  Serious: No
  Sender: FDA-Public Use
  Company Number: None

PATIENT
  Age: 48 Year
  Sex: Male
  Weight: 63.8 kg

DRUGS (14)
  1. IBUPROFEN. [Concomitant]
     Active Substance: IBUPROFEN
  2. ONDANSETRON [Concomitant]
     Active Substance: ONDANSETRON
  3. FILGRASTIM [Concomitant]
     Active Substance: FILGRASTIM
  4. VORICONAZOLE. [Concomitant]
     Active Substance: VORICONAZOLE
  5. ACETAMINOPHEN. [Concomitant]
     Active Substance: ACETAMINOPHEN
  6. VORICONAZOLE. [Suspect]
     Active Substance: VORICONAZOLE
     Indication: FUNGAL INFECTION
     Route: 042
     Dates: start: 20151127, end: 20151127
  7. CEFEPIME [Concomitant]
     Active Substance: CEFEPIME HYDROCHLORIDE
  8. NYSTATIN. [Concomitant]
     Active Substance: NYSTATIN
  9. VANCOMYCIN [Concomitant]
     Active Substance: VANCOMYCIN
  10. ALTEPLASE [Concomitant]
     Active Substance: ALTEPLASE
  11. MICAFUNGIN [Concomitant]
     Active Substance: MICAFUNGIN
  12. METRONIDAZOLE. [Concomitant]
     Active Substance: METRONIDAZOLE
  13. HEPARIN [Concomitant]
     Active Substance: HEPARIN SODIUM
  14. VALACYCLOVIR [Concomitant]
     Active Substance: VALACYCLOVIR HYDROCHLORIDE

REACTIONS (1)
  - Rash maculo-papular [None]

NARRATIVE: CASE EVENT DATE: 20151128
